FAERS Safety Report 8561555-9 (Version None)
Quarter: 2012Q3

REPORT INFORMATION
  Report Type: 
  Country: None (occurrence: None)
  Receive Date: 20120802
  Receipt Date: 20120801
  Transmission Date: 20120928
  Serious: Yes (Life-Threatening, Hospitalization)
  Sender: FDA-Public Use
  Company Number: PHHY2012GB066449

PATIENT
  Age: 53 Year
  Sex: Male

DRUGS (5)
  1. RAMIPRIL [Concomitant]
     Dosage: 2.5 MG, QD
     Dates: start: 20110401
  2. ASPIRIN [Concomitant]
     Dosage: 75 MG, QD
     Route: 048
     Dates: start: 20110401
  3. SIMVASTATIN [Suspect]
     Dosage: 40 MG, QD
     Route: 048
     Dates: start: 20110401, end: 20120610
  4. CLOPIDOGREL [Concomitant]
     Dosage: 75 MG, QD
     Dates: start: 20110401, end: 20120330
  5. BISOPROLOL FUMARATE [Concomitant]
     Dosage: 2.5 MG, QD
     Dates: start: 20110401

REACTIONS (3)
  - PANCREATITIS NECROTISING [None]
  - INTESTINAL PERFORATION [None]
  - RENAL FAILURE [None]
